FAERS Safety Report 23819161 (Version 2)
Quarter: 2025Q2

REPORT INFORMATION
  Report Type: Spontaneous
  Country: AU (occurrence: AU)
  Receive Date: 20240506
  Receipt Date: 20250428
  Transmission Date: 20250717
  Serious: Yes (Death, Hospitalization)
  Sender: Kenvue
  Company Number: AU-JNJFOC-20240484677

PATIENT

DRUGS (1)
  1. ACETAMINOPHEN [Suspect]
     Active Substance: ACETAMINOPHEN
     Indication: Product used for unknown indication
     Route: 065

REACTIONS (1)
  - Intentional overdose [Fatal]
